FAERS Safety Report 9531521 (Version 1)
Quarter: 2013Q3

REPORT INFORMATION
  Report Type: Spontaneous
  Country: CA (occurrence: CA)
  Receive Date: 20130918
  Receipt Date: 20130918
  Transmission Date: 20140515
  Serious: Yes (Other)
  Sender: FDA-Public Use
  Company Number: CA-PFIZER INC-2013265476

PATIENT
  Sex: 0

DRUGS (1)
  1. ZOLOFT [Suspect]
     Dosage: UNK

REACTIONS (2)
  - Gastrointestinal tube insertion [Not Recovered/Not Resolved]
  - Dysphagia [Not Recovered/Not Resolved]
